FAERS Safety Report 10404993 (Version 3)
Quarter: 2014Q4

REPORT INFORMATION
  Report Type: Report from Study
  Country: US (occurrence: US)
  Receive Date: 20140825
  Receipt Date: 20141106
  Transmission Date: 20150528
  Serious: Yes (Other)
  Sender: FDA-Public Use
  Company Number: US-BIOGENIDEC-2014BI084100

PATIENT
  Age: 74 Year
  Sex: Female
  Weight: 56 kg

DRUGS (5)
  1. AMLODIPINE [Concomitant]
     Active Substance: AMLODIPINE BESYLATE
  2. AVONEX [Suspect]
     Active Substance: INTERFERON BETA-1A
     Indication: MULTIPLE SCLEROSIS
     Route: 030
     Dates: start: 20020101
  3. ASPIRIN. [Concomitant]
     Active Substance: ASPIRIN
  4. XANAX [Concomitant]
     Active Substance: ALPRAZOLAM
  5. PEPCID [Concomitant]
     Active Substance: FAMOTIDINE

REACTIONS (5)
  - Night sweats [Recovered/Resolved]
  - Lung adenocarcinoma stage I [Not Recovered/Not Resolved]
  - Weight decreased [Unknown]
  - Pain in extremity [Not Recovered/Not Resolved]
  - Multiple sclerosis relapse [Unknown]

NARRATIVE: CASE EVENT DATE: 201406
